FAERS Safety Report 9780302 (Version 2)
Quarter: 2014Q2

REPORT INFORMATION
  Report Type: Spontaneous
  Country: US (occurrence: US)
  Receive Date: 20131224
  Receipt Date: 20140618
  Transmission Date: 20141212
  Serious: Yes (Other)
  Sender: FDA-Public Use
  Company Number: US-PAR PHARMACEUTICAL, INC-2013SCPR007831

PATIENT
  Sex: 0

DRUGS (1)
  1. BUPROPION HCL XL TABLETS [Suspect]
     Indication: DEPRESSION
     Dosage: 1 DF, OD
     Route: 048
     Dates: start: 201311

REACTIONS (5)
  - Penile swelling [Recovered/Resolved]
  - Eye swelling [Recovered/Resolved]
  - Lip swelling [Recovered/Resolved]
  - Drug ineffective [Unknown]
  - Product quality issue [Unknown]
